FAERS Safety Report 9483176 (Version 2)
Quarter: 2013Q3

REPORT INFORMATION
  Report Type: Spontaneous
  Country: GB (occurrence: GB)
  Receive Date: 20130828
  Receipt Date: 20130828
  Transmission Date: 20140515
  Serious: Yes (Death)
  Sender: FDA-Public Use
  Company Number: GB-AMGEN-US100827

PATIENT
  Age: 81 Year
  Sex: Female
  Weight: 63 kg

DRUGS (5)
  1. ENBREL [Suspect]
     Indication: RHEUMATOID ARTHRITIS
     Dosage: 25 MG, 2 TIMES/WK
     Route: 058
     Dates: start: 20030923, end: 20040408
  2. BENDROFLUMETHIAZIDE [Concomitant]
  3. ETIDRONATE DISODIUM [Concomitant]
  4. DEXTROPROPOXYPHENE HYDROCHLORIDE [Concomitant]
  5. OMEPRAZOLE [Concomitant]

REACTIONS (3)
  - Bronchitis [Fatal]
  - Pulmonary fibrosis [Fatal]
  - Aortic valve stenosis [Fatal]
